FAERS Safety Report 8552952-6 (Version None)
Quarter: 2012Q3

REPORT INFORMATION
  Report Type: 
  Country: None (occurrence: None)
  Receive Date: 20120731
  Receipt Date: 20120727
  Transmission Date: 20120928
  Serious: Yes (Other)
  Sender: FDA-Public Use
  Company Number: PHHY2012IT060279

PATIENT
  Sex: Female

DRUGS (5)
  1. AVASTIN [Suspect]
     Indication: BREAST CANCER
     Route: 042
     Dates: start: 20110601, end: 20120401
  2. ANTIHYPERTENSIVE DRUGS [Concomitant]
  3. ZOMETA [Suspect]
     Indication: BREAST CANCER
     Route: 042
     Dates: start: 20120327, end: 20120418
  4. PACLITAXEL [Concomitant]
     Dates: start: 20110601, end: 20120401
  5. ACTRAPID [Concomitant]
     Dates: start: 20110601, end: 20120401

REACTIONS (1)
  - OSTEONECROSIS OF JAW [None]
